FAERS Safety Report 5216299-8 (Version None)
Quarter: 2007Q1

REPORT INFORMATION
  Report Type: 
  Country: None (occurrence: None)
  Receive Date: 20070118
  Receipt Date: 20070108
  Transmission Date: 20070707
  Serious: Yes (Other)
  Sender: FDA-Public Use
  Company Number: 0701-034

PATIENT
  Sex: 0

DRUGS (1)
  1. ALBUTEROL SULATE [Suspect]

REACTIONS (4)
  - BURKHOLDERIA CEPACIA INFECTION [None]
  - NOSOCOMIAL INFECTION [None]
  - THERAPEUTIC PRODUCT CONTAMINATION [None]
  - WRONG TECHNIQUE IN DRUG USAGE PROCESS [None]
